FAERS Safety Report 5060959-9 (Version None)
Quarter: 2006Q3

REPORT INFORMATION
  Report Type: 
  Country: None (occurrence: None)
  Receive Date: 20060720
  Receipt Date: 20060710
  Transmission Date: 20061208
  Serious: Yes (Hospitalization)
  Sender: FDA-Public Use
  Company Number: 200613695BWH

PATIENT
  Age: 55 Year
  Sex: Female
  Weight: 59.8748 kg

DRUGS (11)
  1. AVELOX [Suspect]
     Indication: BRONCHIECTASIS
     Dosage: 400 MG QD ORAL
     Route: 048
     Dates: start: 20060426, end: 20060505
  2. AVELOX [Suspect]
     Indication: SINUSITIS
     Dosage: 400 MG QD ORAL
     Route: 048
     Dates: start: 20060426, end: 20060505
  3. AVELOX [Suspect]
     Indication: BRONCHIECTASIS
     Dosage: 400 MG QD ORAL
     Route: 048
     Dates: start: 20060101
  4. AVELOX [Suspect]
     Indication: SINUSITIS
     Dosage: 400 MG QD ORAL
     Route: 048
     Dates: start: 20060101
  5. AVELOX [Suspect]
     Indication: BRONCHIECTASIS
     Dosage: 400 MG QD ORAL
     Route: 048
     Dates: start: 20060426
  6. AVELOX [Suspect]
     Indication: SINUSITIS
     Dosage: 400 MG QD ORAL
     Route: 048
     Dates: start: 20060426
  7. LEVOTHROID [Concomitant]
  8. FOSAMAX [Concomitant]
  9. PULMICORT [Concomitant]
  10. LEVAQUIN [Concomitant]
  11. TEQUIN [Concomitant]

REACTIONS (13)
  - ANOREXIA [None]
  - ASTHENIA [None]
  - CHILLS [None]
  - COLD SWEAT [None]
  - DIZZINESS [None]
  - FEELING ABNORMAL [None]
  - HEPATIC FUNCTION ABNORMAL [None]
  - HYPOKALAEMIA [None]
  - HYPONATRAEMIA [None]
  - PYREXIA [None]
  - RASH [None]
  - RENAL IMPAIRMENT [None]
  - WHITE BLOOD CELL COUNT INCREASED [None]
